FAERS Safety Report 5615050-7 (Version None)
Quarter: 2008Q1

REPORT INFORMATION
  Report Type: 
  Country: None (occurrence: None)
  Receive Date: 20080206
  Receipt Date: 20080124
  Transmission Date: 20080703
  Serious: Yes (Other)
  Sender: FDA-Public Use
  Company Number: CA-BAYER-200812132NA

PATIENT
  Age: 64 Year
  Sex: Male

DRUGS (3)
  1. CIPRO [Suspect]
     Indication: DRUG USE FOR UNKNOWN INDICATION
     Route: 065
  2. LIPITOR [Concomitant]
  3. ASPIRIN [Concomitant]

REACTIONS (16)
  - ABDOMINAL PAIN [None]
  - ANOREXIA [None]
  - ANXIETY [None]
  - CONFUSIONAL STATE [None]
  - DEPRESSION [None]
  - DISORIENTATION [None]
  - DYSPEPSIA [None]
  - DYSPHONIA [None]
  - HEADACHE [None]
  - LETHARGY [None]
  - NAUSEA [None]
  - NERVOUSNESS [None]
  - NIGHTMARE [None]
  - STUPOR [None]
  - SUICIDAL IDEATION [None]
  - VOMITING [None]
